FAERS Safety Report 6649254-1 (Version None)
Quarter: 2010Q1

REPORT INFORMATION
  Report Type: 
  Country: None (occurrence: None)
  Receive Date: 20100319
  Receipt Date: 20100308
  Transmission Date: 20100710
  Serious: Yes (Hospitalization)
  Sender: FDA-Public Use
  Company Number: DEP_00345_2010

PATIENT
  Age: 66 Year
  Sex: Female

DRUGS (3)
  1. CIPROFLOXACIN [Suspect]
     Indication: PYELONEPHRITIS ACUTE
     Dosage: (1000 MG, PER DAY)
  2. LEVOTHYROXINE SODIUM [Suspect]
     Indication: THYROID HORMONE REPLACEMENT THERAPY
     Dosage: (150 UG, PER DAY)
  3. LEVOTHYROXINE SODIUM [Suspect]
     Indication: THYROID HORMONE REPLACEMENT THERAPY
     Dosage: (1 MG, PER DAY)

REACTIONS (5)
  - DRUG INTERACTION [None]
  - HYPERTHYROIDISM [None]
  - INCORRECT DOSE ADMINISTERED [None]
  - PYELONEPHRITIS ACUTE [None]
  - STEVENS-JOHNSON SYNDROME [None]
